FAERS Safety Report 17253614 (Version 1)
Quarter: 2020Q1

REPORT INFORMATION
  Report Type: Spontaneous
  Country: US (occurrence: US)
  Receive Date: 20200109
  Receipt Date: 20200109
  Transmission Date: 20200409
  Serious: Yes (Other)
  Sender: FDA-Public Use
  Company Number: US-MALLINCKRODT-T201909213

PATIENT

DRUGS (1)
  1. OFIRMEV [Suspect]
     Active Substance: ACETAMINOPHEN
     Indication: PUERPERAL PYREXIA
     Dosage: 1000 MILLIGRAM, UP TO 4 DOSES IN A 24-HOUR PERIOD
     Route: 042

REACTIONS (2)
  - Tachycardia foetal [Unknown]
  - Sepsis neonatal [Unknown]
